FAERS Safety Report 11828148 (Version 1)
Quarter: 2015Q4

REPORT INFORMATION
  Report Type: Spontaneous
  Country: US (occurrence: US)
  Receive Date: 20151211
  Receipt Date: 20151211
  Transmission Date: 20160305
  Serious: No
  Sender: FDA-Public Use
  Company Number: US-PFIZER INC-2015407637

PATIENT

DRUGS (1)
  1. ZITHROMAX [Suspect]
     Active Substance: AZITHROMYCIN DIHYDRATE
     Indication: MALAISE
     Dosage: UNK
     Route: 030

REACTIONS (4)
  - Injection site swelling [Unknown]
  - Injection site infection [Unknown]
  - Incorrect route of drug administration [Unknown]
  - Injection site erythema [Unknown]
